FAERS Safety Report 24250788 (Version 1)
Quarter: 2024Q3

REPORT INFORMATION
  Report Type: Spontaneous
  Country: US (occurrence: US)
  Receive Date: 20240826
  Receipt Date: 20240826
  Transmission Date: 20241016
  Serious: No
  Sender: MEDEXUS PHARMA
  Company Number: US-MEDEXUS PHARMA, INC.-2023MED00332

PATIENT
  Age: 54 Year
  Sex: Female
  Weight: 61.678 kg

DRUGS (10)
  1. RASUVO [Suspect]
     Active Substance: METHOTREXATE SODIUM
     Indication: Urticaria
     Dosage: 10 MG
     Dates: start: 20230814
  2. VITAMIN D NOS [Concomitant]
     Active Substance: CHOLECALCIFEROL\ERGOCALCIFEROL
  3. PREGABALIN [Concomitant]
     Active Substance: PREGABALIN
  4. MONTELUKAST [Concomitant]
     Active Substance: MONTELUKAST SODIUM
  5. ALBUTEROL [Concomitant]
     Active Substance: ALBUTEROL
     Dosage: UNK, AS NEEDED
  6. ZYRTEC [Concomitant]
     Active Substance: CETIRIZINE HYDROCHLORIDE
  7. FAMOTIDINE [Concomitant]
     Active Substance: FAMOTIDINE
  8. HYDROXYZINE [Concomitant]
     Active Substance: HYDROXYZINE HYDROCHLORIDE
  9. TRAZODONE [Concomitant]
     Active Substance: TRAZODONE HYDROCHLORIDE
  10. PREDNISONE [Concomitant]
     Active Substance: PREDNISONE

REACTIONS (6)
  - Influenza like illness [Recovering/Resolving]
  - Pain [Recovering/Resolving]
  - Migraine [Recovering/Resolving]
  - Hangover [Recovering/Resolving]
  - Off label use [Not Recovered/Not Resolved]
  - Headache [Recovering/Resolving]

NARRATIVE: CASE EVENT DATE: 20230814
